FAERS Safety Report 5696686-4 (Version None)
Quarter: 2008Q2

REPORT INFORMATION
  Report Type: 
  Country: None (occurrence: None)
  Receive Date: 20080408
  Receipt Date: 20060921
  Transmission Date: 20081010
  Serious: No
  Sender: FDA-Public Use
  Company Number: US-BAYER-US-2006-028271

PATIENT
  Age: 21 Year
  Sex: Female

DRUGS (1)
  1. YASMIN [Suspect]
     Route: 048

REACTIONS (9)
  - ACNE [None]
  - ANORGASMIA [None]
  - BREAST TENDERNESS [None]
  - FEMALE SEXUAL AROUSAL DISORDER [None]
  - LOSS OF LIBIDO [None]
  - MENORRHAGIA [None]
  - MOOD SWINGS [None]
  - NAUSEA [None]
  - VOMITING [None]
